FAERS Safety Report 7070489-0 (Version None)
Quarter: 2010Q4

REPORT INFORMATION
  Report Type: 
  Country: None (occurrence: None)
  Receive Date: 20101027
  Receipt Date: 20101027
  Transmission Date: 20110411
  Serious: Yes (Life-Threatening, Disabling, Other)
  Sender: FDA-Public Use
  Company Number: None

PATIENT
  Age: 6 Month
  Sex: Male
  Weight: 7.2576 kg

DRUGS (1)
  1. HYLAND'S TEETHING PILLS [Suspect]

REACTIONS (2)
  - PRODUCT QUALITY ISSUE [None]
  - RASH GENERALISED [None]
